FAERS Safety Report 9949047 (Version 1)
Quarter: 2014Q1

REPORT INFORMATION
  Report Type: Spontaneous
  Country: US (occurrence: None)
  Receive Date: 20140122
  Receipt Date: 20140122
  Transmission Date: 20141002
  Serious: No
  Sender: FDA-Public Use
  Company Number: AEGR000175

PATIENT
  Age: 66 Year
  Sex: Female
  Weight: 74.8 kg

DRUGS (5)
  1. JUXTAPID (LOMITAPIDE) CAPSULE, 5MG [Suspect]
     Indication: BLOOD CHOLESTEROL INCREASED
     Route: 048
     Dates: start: 201305, end: 201308
  2. LIVALO (PITAVASTATIN CALCIUM) [Concomitant]
  3. ZETIA (EZETIMIBE) [Concomitant]
  4. VITAMIN E (TOCOPHERYL ACID SUCCINATE) [Concomitant]
  5. WELCHOL (COLESEVELAM HYDROCHLORIDE) (625 MILLIGRAM, TABLET) (COLESEVELAM HYDROCHLORIDE) [Concomitant]

REACTIONS (4)
  - Malaise [None]
  - Off label use [None]
  - Vomiting [None]
  - Weight decreased [None]
